FAERS Safety Report 9868045 (Version 2)
Quarter: 2014Q1

REPORT INFORMATION
  Report Type: Report from Study
  Country: DK (occurrence: DK)
  Receive Date: 20140204
  Receipt Date: 20140204
  Transmission Date: 20141002
  Serious: Yes (Hospitalization)
  Sender: FDA-Public Use
  Company Number: DK-SANOFI-AVENTIS-2012SA027260

PATIENT
  Age: 58 Year
  Sex: Female

DRUGS (4)
  1. TERIFLUNOMIDE [Suspect]
     Indication: MULTIPLE SCLEROSIS RELAPSE
     Dosage: DOSE:1 UNIT(S)
     Route: 048
     Dates: start: 20080930
  2. XALATAN [Concomitant]
     Route: 047
     Dates: start: 20110316
  3. ARTHROTEC FORTE [Concomitant]
     Route: 065
     Dates: start: 20110316
  4. DICLOFENAC SODIUM [Concomitant]
     Route: 065
     Dates: start: 20100319

REACTIONS (1)
  - Pneumonia [Recovered/Resolved]
